FAERS Safety Report 11073799 (Version 1)
Quarter: 2015Q2

REPORT INFORMATION
  Report Type: Spontaneous
  Country: ES (occurrence: ES)
  Receive Date: 20150428
  Receipt Date: 20150428
  Transmission Date: 20150821
  Serious: Yes (Other)
  Sender: FDA-Public Use
  Company Number: ES-SPECTRUM PHARMACEUTICALS, INC.-15-Z-ES-00168

PATIENT
  Sex: Male

DRUGS (3)
  1. RITUXIMAB [Suspect]
     Active Substance: RITUXIMAB
     Indication: B-CELL LYMPHOMA
     Dosage: 250 MG/M2, SINGLE, ON DAY 7
     Route: 042
  2. RITUXIMAB [Suspect]
     Active Substance: RITUXIMAB
     Dosage: 250 MG/M2, SINGLE, ON DAY 1
     Route: 042
  3. ZEVALIN [Suspect]
     Active Substance: IBRITUMOMAB TIUXETAN
     Indication: B-CELL LYMPHOMA
     Dosage: 0.3  MCI/KG OR 0.4 MCI/KG, SINGLE, ON DAY 7
     Route: 042
     Dates: start: 20120831, end: 20120831

REACTIONS (1)
  - Prostate cancer [Recovered/Resolved]

NARRATIVE: CASE EVENT DATE: 20140606
